FAERS Safety Report 25454206 (Version 1)
Quarter: 2025Q2

REPORT INFORMATION
  Report Type: Report from Study
  Country: US (occurrence: US)
  Receive Date: 20250619
  Receipt Date: 20250619
  Transmission Date: 20250717
  Serious: No
  Sender: ABBVIE
  Company Number: US-ABBVIE-6326279

PATIENT
  Sex: Female

DRUGS (1)
  1. RINVOQ [Suspect]
     Active Substance: UPADACITINIB
     Indication: Dermatitis atopic
     Route: 048

REACTIONS (10)
  - Abdominal discomfort [Unknown]
  - Constipation [Unknown]
  - Weight increased [Unknown]
  - Nightmare [Unknown]
  - Insomnia [Unknown]
  - Fatigue [Unknown]
  - Vision blurred [Unknown]
  - Vitreous floaters [Unknown]
  - White blood cell count decreased [Unknown]
  - Blood cholesterol increased [Unknown]
